FAERS Safety Report 7619951-X (Version None)
Quarter: 2011Q3

REPORT INFORMATION
  Report Type: 
  Country: None (occurrence: None)
  Receive Date: 20110719
  Receipt Date: 20110705
  Transmission Date: 20111222
  Serious: Yes (Other)
  Sender: FDA-Public Use
  Company Number: US-SANOFI-AVENTIS-2011SA044554

PATIENT
  Age: 76 Year
  Sex: Female
  Weight: 84 kg

DRUGS (10)
  1. DIGOXIN [Concomitant]
     Route: 065
  2. LISINOPRIL [Concomitant]
     Route: 065
     Dates: end: 20110207
  3. DRONEDARONE HCL [Suspect]
     Indication: ATRIAL FIBRILLATION
     Route: 048
     Dates: start: 20110127
  4. METOPROLOL TARTRATE [Concomitant]
     Route: 065
  5. AMLODIPINE [Concomitant]
     Route: 065
  6. INSULIN [Concomitant]
     Route: 065
  7. ROSUVASTATIN [Concomitant]
     Route: 065
     Dates: start: 20110128
  8. ASPIRIN [Concomitant]
     Route: 065
  9. WARFARIN SODIUM [Concomitant]
     Route: 065
  10. SIMVASTATIN [Concomitant]
     Route: 065
     Dates: end: 20110127

REACTIONS (1)
  - CARDIAC FAILURE [None]
